FAERS Safety Report 9114290 (Version 1)
Quarter: 2013Q1

REPORT INFORMATION
  Report Type: Spontaneous
  Country: US (occurrence: US)
  Receive Date: 20130208
  Receipt Date: 20130208
  Transmission Date: 20140127
  Serious: No
  Sender: FDA-Public Use
  Company Number: US-009507513-1302USA003527

PATIENT
  Sex: Female

DRUGS (2)
  1. MIRALAX [Suspect]
     Indication: BOWEL PREPARATION
     Dosage: UNK, UNKNOWN
     Route: 048
     Dates: start: 2009
  2. MIRALAX [Suspect]
     Indication: MEDICAL OBSERVATION
     Dosage: EIGHT 8 OZ GLASSES EVERY 28 MINUTES
     Route: 048

REACTIONS (5)
  - Urticaria [Unknown]
  - Chills [Unknown]
  - Tremor [Unknown]
  - Overdose [Unknown]
  - Off label use [Unknown]
